FAERS Safety Report 11927037 (Version 1)
Quarter: 2016Q1

REPORT INFORMATION
  Report Type: Spontaneous
  Country: CA (occurrence: CA)
  Receive Date: 20160119
  Receipt Date: 20160119
  Transmission Date: 20160526
  Serious: Yes (Hospitalization)
  Sender: FDA-Public Use
  Company Number: CA-ROCHE-1696858

PATIENT
  Age: 55 Year
  Sex: Female

DRUGS (2)
  1. LAPATINIB [Concomitant]
     Active Substance: LAPATINIB
  2. CAPECITABINE. [Suspect]
     Active Substance: CAPECITABINE
     Indication: BREAST CANCER METASTATIC
     Dosage: THERAPY DURATION:  2.0 MONTH(S)
     Route: 065

REACTIONS (1)
  - Gastrointestinal toxicity [Unknown]
